FAERS Safety Report 17686396 (Version 1)
Quarter: 2020Q2

REPORT INFORMATION
  Report Type: Spontaneous
  Country: FR (occurrence: FR)
  Receive Date: 20200420
  Receipt Date: 20200420
  Transmission Date: 20200714
  Serious: Yes (Other)
  Sender: FDA-Public Use
  Company Number: FR-ANIPHARMA-2020-FR-000112

PATIENT
  Sex: Female

DRUGS (2)
  1. TEMERIT [Suspect]
     Active Substance: NEBIVOLOL
     Dosage: 2.5 MG QD
     Route: 065
  2. CANDESARTAN CILEXETIL. [Suspect]
     Active Substance: CANDESARTAN CILEXETIL
     Indication: HYPERTENSION
     Dosage: 8 MG QD
     Route: 048

REACTIONS (1)
  - Open angle glaucoma [Unknown]
